FAERS Safety Report 17473888 (Version 1)
Quarter: 2020Q1

REPORT INFORMATION
  Report Type: Spontaneous
  Country: US (occurrence: US)
  Receive Date: 20200218
  Receipt Date: 20200218
  Transmission Date: 20200409
  Serious: No
  Sender: FDA-Public Use
  Company Number: None

PATIENT
  Age: 63 Year
  Sex: Female

DRUGS (1)
  1. CAPECITABINE TAB 500MG [Suspect]
     Active Substance: CAPECITABINE
     Dosage: ?          OTHER FREQUENCY:OTHER;?
     Route: 048
     Dates: start: 201912

REACTIONS (6)
  - Fluid intake reduced [None]
  - Palmar-plantar erythrodysaesthesia syndrome [None]
  - Feeding disorder [None]
  - Stomatitis [None]
  - Skin exfoliation [None]
  - Cheilitis [None]

NARRATIVE: CASE EVENT DATE: 20200218
